FAERS Safety Report 13012159 (Version 1)
Quarter: 2016Q4

REPORT INFORMATION
  Report Type: Report from Study
  Country: MX (occurrence: MX)
  Receive Date: 20161209
  Receipt Date: 20161209
  Transmission Date: 20170207
  Serious: Yes (Other)
  Sender: FDA-Public Use
  Company Number: PHHY2015MX070036

PATIENT
  Sex: Male

DRUGS (2)
  1. RITALIN LA [Suspect]
     Active Substance: METHYLPHENIDATE HYDROCHLORIDE
     Indication: ATTENTION DEFICIT/HYPERACTIVITY DISORDER
     Dosage: 30 MG, UNK
     Route: 065
  2. RITALIN LA [Suspect]
     Active Substance: METHYLPHENIDATE HYDROCHLORIDE
     Dosage: 20 MG, QD
     Route: 065

REACTIONS (6)
  - Pharyngeal ulceration [Not Recovered/Not Resolved]
  - Fall [Unknown]
  - Psychomotor hyperactivity [Not Recovered/Not Resolved]
  - Malaise [Not Recovered/Not Resolved]
  - Dysphagia [Not Recovered/Not Resolved]
  - Speech disorder [Not Recovered/Not Resolved]
